FAERS Safety Report 10204567 (Version 2)
Quarter: 2014Q3

REPORT INFORMATION
  Report Type: Spontaneous
  Country: US (occurrence: US)
  Receive Date: 20140529
  Receipt Date: 20140708
  Transmission Date: 20150326
  Serious: Yes (Other)
  Sender: FDA-Public Use
  Company Number: US-TEVA-484523USA

PATIENT
  Age: 20 Year
  Sex: Female
  Weight: 47.67 kg

DRUGS (2)
  1. VITAMINS [Concomitant]
     Active Substance: VITAMINS
     Indication: PREGNANCY
  2. PARAGARD T380A [Suspect]
     Active Substance: COPPER
     Indication: CONTRACEPTION
     Route: 015
     Dates: start: 20091003

REACTIONS (5)
  - Muscle spasms [Unknown]
  - Pregnancy with contraceptive device [Not Recovered/Not Resolved]
  - Embedded device [Not Recovered/Not Resolved]
  - Medical device complication [Unknown]
  - Exposure during pregnancy [Unknown]

NARRATIVE: CASE EVENT DATE: 200910
